FAERS Safety Report 16428570 (Version 4)
Quarter: 2019Q3

REPORT INFORMATION
  Report Type: Report from Study
  Country: US (occurrence: US)
  Receive Date: 20190613
  Receipt Date: 20190917
  Transmission Date: 20191004
  Serious: Yes (Other)
  Sender: FDA-Public Use
  Company Number: PHEH2019US025070

PATIENT
  Sex: Male

DRUGS (2)
  1. ENTRESTO [Suspect]
     Active Substance: SACUBITRIL\VALSARTAN
     Indication: CARDIAC FAILURE
     Dosage: UNK, BID
     Route: 048
  2. XARELTO [Concomitant]
     Active Substance: RIVAROXABAN
     Indication: PRODUCT USED FOR UNKNOWN INDICATION
     Route: 065

REACTIONS (10)
  - Prostate infection [Unknown]
  - Pericardial effusion [Unknown]
  - Dyspnoea [Unknown]
  - Confusional state [Unknown]
  - Therapeutic response unexpected [Unknown]
  - Blood glucose increased [Unknown]
  - Weight increased [Unknown]
  - Tension headache [Unknown]
  - Fatigue [Unknown]
  - Asthenia [Unknown]
